FAERS Safety Report 8747362 (Version 2)
Quarter: 2012Q4

REPORT INFORMATION
  Report Type: Report from Study
  Country: PL (occurrence: PL)
  Receive Date: 20120827
  Receipt Date: 20121016
  Transmission Date: 20130627
  Serious: Yes (Death, Life-Threatening, Hospitalization)
  Sender: FDA-Public Use
  Company Number: PL-CELGENEUS-129-CCAZA-12072739

PATIENT
  Age: 79 Year
  Sex: Male
  Weight: 79 kg

DRUGS (5)
  1. AZACITIDINE INJECTABLE [Suspect]
     Indication: ACUTE MYELOID LEUKEMIA
     Dosage: 75 milligram/sq. meter
     Route: 058
     Dates: start: 20120703, end: 20120709
  2. CIPROFLOXACIN [Suspect]
     Indication: PROPHYLAXIS
     Route: 065
  3. FORTUM [Suspect]
     Indication: COLITIS PSEUDOMEMBRANOUS
     Route: 041
  4. FORTUM [Suspect]
     Indication: FEVER
  5. KCL [Concomitant]
     Indication: HYPOKALEMIA
     Route: 065

REACTIONS (2)
  - Pyrexia [Recovered/Resolved]
  - Pseudomembranous colitis [Fatal]
